FAERS Safety Report 14750087 (Version 3)
Quarter: 2025Q1

REPORT INFORMATION
  Report Type: Report from Study
  Country: ES (occurrence: ES)
  Receive Date: 20180412
  Receipt Date: 20250113
  Transmission Date: 20250408
  Serious: Yes (Other)
  Sender: ACCORD
  Company Number: ES-ACCORD-065436

PATIENT
  Age: 47 Year
  Sex: Female

DRUGS (6)
  1. MYCOPHENOLATE MOFETIL [Suspect]
     Active Substance: MYCOPHENOLATE MOFETIL
     Indication: Immunosuppression
  2. TACROLIMUS [Suspect]
     Active Substance: TACROLIMUS
     Indication: Immunosuppression
  3. VALGANCICLOVIR HYDROCHLORIDE [Suspect]
     Active Substance: VALGANCICLOVIR HYDROCHLORIDE
     Indication: Infection
     Dosage: FOR 2 WEEKS
  4. GANCICLOVIR [Suspect]
     Active Substance: GANCICLOVIR
     Indication: Infection
     Dosage: STARTED AT HIGH DOSES FOR 8?DAYS
  5. FOSCARNET [Suspect]
     Active Substance: FOSCARNET
     Indication: Infection
     Dosage: HIGH-DOSE FOS90-100 MG TWICE DAILY FOR 20 DAYS
  6. BASILIXIMAB [Suspect]
     Active Substance: BASILIXIMAB
     Indication: Renal transplant

REACTIONS (7)
  - Leukopenia [Unknown]
  - Hypomagnesaemia [Unknown]
  - Neutropenia [Unknown]
  - Nephrogenic diabetes insipidus [Unknown]
  - Drug ineffective [Unknown]
  - Drug resistance [Unknown]
  - Cytomegalovirus infection [Recovered/Resolved]
